FAERS Safety Report 14111505 (Version 2)
Quarter: 2017Q4

REPORT INFORMATION
  Report Type: Spontaneous
  Country: US (occurrence: US)
  Receive Date: 20171020
  Receipt Date: 20171101
  Transmission Date: 20180321
  Serious: Yes (Death)
  Sender: FDA-Public Use
  Company Number: US-FRESENIUS MEDICAL CARE RENAL THERAPIES GROUP-FMC-1710-001263

PATIENT
  Sex: Female
  Weight: 83 kg

DRUGS (16)
  1. ATORVASTATIN [Concomitant]
     Active Substance: ATORVASTATIN
  2. ISOSORBIDE MONONITRATE. [Concomitant]
     Active Substance: ISOSORBIDE MONONITRATE
  3. LEVEMIR [Concomitant]
     Active Substance: INSULIN DETEMIR
  4. LABETALOL [Concomitant]
     Active Substance: LABETALOL\LABETALOL HYDROCHLORIDE
  5. PYRIDOXINE [Concomitant]
     Active Substance: PYRIDOXINE
  6. ALPRAZOLAM. [Concomitant]
     Active Substance: ALPRAZOLAM
  7. CHOLECALCIFEROL [Concomitant]
     Active Substance: CHOLECALCIFEROL
  8. GENTAMICIN. [Concomitant]
     Active Substance: GENTAMICIN
  9. CALCITRIOL. [Concomitant]
     Active Substance: CALCITRIOL
  10. LOSARTAN. [Concomitant]
     Active Substance: LOSARTAN
  11. NEPHPLEX [Concomitant]
     Active Substance: VITAMINS
  12. AMLODIPINE [Concomitant]
     Active Substance: AMLODIPINE BESYLATE
  13. FLUTICASONE. [Concomitant]
     Active Substance: FLUTICASONE
     Route: 045
  14. FUROSEMIDE. [Concomitant]
     Active Substance: FUROSEMIDE
  15. DELFLEX [Suspect]
     Active Substance: CALCIUM CHLORIDE\DEXTROSE\MAGNESIUM CHLORIDE\SODIUM CHLORIDE\SODIUM LACTATE
     Indication: END STAGE RENAL DISEASE
     Route: 033
  16. CLONIDINE. [Concomitant]
     Active Substance: CLONIDINE

REACTIONS (1)
  - Myocardial infarction [Fatal]
